FAERS Safety Report 5880639-7 (Version None)
Quarter: 2008Q3

REPORT INFORMATION
  Report Type: 
  Country: None (occurrence: None)
  Receive Date: 20080912
  Receipt Date: 20080606
  Transmission Date: 20090109
  Serious: No
  Sender: FDA-Public Use
  Company Number: US-ABBOTT-08P-163-0455882-00

PATIENT
  Sex: Female
  Weight: 59.02 kg

DRUGS (13)
  1. HUMIRA [Suspect]
     Indication: CROHN'S DISEASE
     Route: 058
  2. HUMIRA [Suspect]
     Route: 058
     Dates: start: 20080403
  3. HUMIRA [Suspect]
     Route: 058
  4. GENERIC PRILOSEC [Concomitant]
     Indication: GASTROOESOPHAGEAL REFLUX DISEASE
     Route: 048
  5. LOSARTAN POTASSIUM [Concomitant]
     Indication: HYPERTENSION
     Route: 048
  6. GENERIC LOBID [Concomitant]
     Indication: HYPERTENSION
     Route: 048
  7. RALOXIFENE HYDROCHLORIDE [Concomitant]
     Indication: OSTEOPOROSIS
     Route: 048
  8. IRON [Concomitant]
     Indication: ANAEMIA
     Route: 048
     Dates: start: 20050101
  9. PROBIOTIC [Concomitant]
     Indication: ENZYME SUPPLEMENTATION
     Route: 048
  10. VITAMIN TAB [Concomitant]
     Indication: VITAMIN SUPPLEMENTATION
     Route: 048
  11. METAMUCIL [Concomitant]
     Indication: CROHN'S DISEASE
     Route: 048
     Dates: start: 19920101
  12. CALCIUM [Concomitant]
     Indication: MINERAL SUPPLEMENTATION
     Dosage: 2-3 TEASPOONS DAILY
     Route: 048
  13. ERGOCALCIFEROL [Concomitant]
     Indication: VITAMIN SUPPLEMENTATION
     Route: 048

REACTIONS (7)
  - EAR PAIN [None]
  - EYE PAIN [None]
  - HEADACHE [None]
  - HUNGER [None]
  - MUSCULOSKELETAL STIFFNESS [None]
  - NOCTURIA [None]
  - THROAT IRRITATION [None]
